FAERS Safety Report 5089657-2 (Version None)
Quarter: 2006Q3

REPORT INFORMATION
  Report Type: 
  Country: None (occurrence: None)
  Receive Date: 20060731
  Receipt Date: 20051114
  Transmission Date: 20061208
  Serious: Yes (Other)
  Sender: FDA-Public Use
  Company Number: US200511001985

PATIENT
  Age: 71 Year
  Sex: Female

DRUGS (13)
  1. FORTEO [Suspect]
     Indication: OSTEOPOROSIS
     Dates: start: 20041101
  2. FORTEO [Concomitant]
  3. VALSARTAN [Concomitant]
  4. MOBIC [Concomitant]
  5. SIMVASTATIN [Concomitant]
  6. CARDIZEM [Concomitant]
  7. FUROSEMIDE [Concomitant]
  8. ASA (ASPIRIN) (ACETYLSALICYLIC ACID) [Concomitant]
  9. CALCIUM W/VITAMIN D NOS [Concomitant]
  10. ANASTROZOLE [Concomitant]
  11. MIACALCIN [Concomitant]
  12. ALENDRONATE SODIUM [Concomitant]
  13. AROMASIN [Concomitant]

REACTIONS (7)
  - BLOOD PRESSURE SYSTOLIC INCREASED [None]
  - CHILLS [None]
  - FEELING ABNORMAL [None]
  - FLUSHING [None]
  - HEART RATE INCREASED [None]
  - MIDDLE INSOMNIA [None]
  - PULSE ABNORMAL [None]
